FAERS Safety Report 8776641 (Version 2)
Quarter: 2012Q4

REPORT INFORMATION
  Report Type: 
  Country: JP (occurrence: JP)
  Receive Date: 20120910
  Receipt Date: 20121001
  Transmission Date: 20130627
  Serious: Yes (Death, Other)
  Sender: FDA-Public Use
  Company Number: JP-ASTRAZENECA-2012SE69805

PATIENT
  Age: 59 Year
  Sex: Female

DRUGS (6)
  1. MEROPENEM [Suspect]
     Indication: ANTIBIOTIC THERAPY
     Route: 042
  2. VANCOMYCIN [Suspect]
     Indication: ANTIBIOTIC THERAPY
     Route: 042
  3. TACROLIMUS [Suspect]
     Indication: IMMUNOSUPPRESSION
  4. METHYLPREDNISOLONE [Suspect]
     Indication: IMMUNOSUPPRESSION
     Dosage: 40 mg
  5. CIPROFLOXACIN [Suspect]
     Indication: ANTIBIOTIC THERAPY
     Route: 042
  6. AMIKACIN [Suspect]
     Indication: ANTIBIOTIC THERAPY
     Route: 042

REACTIONS (3)
  - Pneumonia bacterial [Fatal]
  - Mucosal inflammation [Unknown]
  - Enterococcal infection [Unknown]
